FAERS Safety Report 7671118-5 (Version None)
Quarter: 2011Q3

REPORT INFORMATION
  Report Type: 
  Country: None (occurrence: None)
  Receive Date: 20110809
  Receipt Date: 20110805
  Transmission Date: 20111222
  Serious: Yes (Death, Hospitalization, Other)
  Sender: FDA-Public Use
  Company Number: FR-B.I. PHARMACEUTICALS,INC./RIDGEFIELD-2011-FF-00752FF

PATIENT
  Sex: Male

DRUGS (6)
  1. SPIRIVA [Suspect]
     Dosage: 18 MCG
     Route: 055
  2. ASPIRIN [Suspect]
     Dosage: 75 MG
     Route: 048
  3. ARIXTRA [Suspect]
     Dosage: 0.6 ML
     Route: 058
     Dates: end: 20110614
  4. FERROUS SULFATE TAB [Suspect]
     Dosage: 80 MG
     Route: 048
  5. LEVOTHYROXINE SODIUM [Suspect]
     Dosage: 100 MCG
     Route: 048
  6. ALLOPURINOL [Suspect]
     Dosage: 300 MG
     Route: 048

REACTIONS (12)
  - INTESTINAL OBSTRUCTION [None]
  - MUSCLE HAEMORRHAGE [None]
  - FALL [None]
  - RED BLOOD CELL COUNT DECREASED [None]
  - HAEMORRHAGE [None]
  - RENAL FAILURE ACUTE [None]
  - FAECAL VOMITING [None]
  - HAEMARTHROSIS [None]
  - INJURY [None]
  - SEPTIC SHOCK [None]
  - RENAL FAILURE CHRONIC [None]
  - ANAEMIA [None]
